FAERS Safety Report 11366385 (Version 1)
Quarter: 2015Q3

REPORT INFORMATION
  Report Type: Spontaneous
  Country: US (occurrence: US)
  Receive Date: 20150811
  Receipt Date: 20150811
  Transmission Date: 20151125
  Serious: No
  Sender: FDA-Public Use
  Company Number: US-ELI_LILLY_AND_COMPANY-US201301004064

PATIENT
  Sex: Male

DRUGS (13)
  1. LANOXIN [Concomitant]
     Active Substance: DIGOXIN
  2. LASIX [Concomitant]
     Active Substance: FUROSEMIDE
  3. VITAMIN D [Concomitant]
     Active Substance: CHOLECALCIFEROL
     Dosage: 50000 U, WEEKLY (1/W)
  4. FLEXERIL [Concomitant]
     Active Substance: CYCLOBENZAPRINE HYDROCHLORIDE
     Dosage: 10 MG, QD
  5. NAPROXEN. [Concomitant]
     Active Substance: NAPROXEN
     Dosage: 500 MG, BID
  6. HUMALOG [Concomitant]
     Active Substance: INSULIN LISPRO
  7. AXIRON [Suspect]
     Active Substance: TESTOSTERONE
     Indication: BLOOD TESTOSTERONE DECREASED
     Dosage: UNK
     Dates: start: 20111212, end: 20121210
  8. COREG [Concomitant]
     Active Substance: CARVEDILOL
     Dosage: 12.5 MG, BID
  9. ZOCOR [Concomitant]
     Active Substance: SIMVASTATIN
     Dosage: 80 MG, QD
  10. FISH OIL [Concomitant]
     Active Substance: FISH OIL
  11. KCL [Concomitant]
     Active Substance: POTASSIUM CHLORIDE
  12. ADIPEX-P [Concomitant]
     Active Substance: PHENTERMINE HYDROCHLORIDE
     Dosage: UNK, QD
  13. KLONOPIN [Concomitant]
     Active Substance: CLONAZEPAM
     Dosage: 0.5 MG, QD

REACTIONS (2)
  - Prescribed overdose [Recovered/Resolved]
  - Blood testosterone decreased [Unknown]
